FAERS Safety Report 6361294-9 (Version None)
Quarter: 2009Q3

REPORT INFORMATION
  Report Type: 
  Country: None (occurrence: None)
  Receive Date: 20090916
  Receipt Date: 20090916
  Transmission Date: 20100115
  Serious: Yes (Other)
  Sender: FDA-Public Use
  Company Number: None

PATIENT
  Age: 35 Year
  Sex: Female
  Weight: 97.5234 kg

DRUGS (7)
  1. SIMCOR [Suspect]
     Indication: BLOOD CHOLESTEROL INCREASED
     Dosage: 500/20 ONCE A DAY ORAL
     Route: 048
     Dates: start: 20090729, end: 20090801
  2. LITHOBID [Concomitant]
  3. SYNTHROID [Concomitant]
  4. TRIAMTERENE [Concomitant]
  5. TARKA [Concomitant]
  6. SERTRALINE HCL [Concomitant]
  7. POTASSIUM CHLORIDE [Concomitant]

REACTIONS (6)
  - BURNING SENSATION [None]
  - EYELID DISORDER [None]
  - GENERALISED ERYTHEMA [None]
  - NERVOUS SYSTEM DISORDER [None]
  - PARAESTHESIA [None]
  - SKIN BURNING SENSATION [None]
